FAERS Safety Report 8157432-8 (Version None)
Quarter: 2012Q1

REPORT INFORMATION
  Report Type: 
  Country: None (occurrence: None)
  Receive Date: 20120222
  Receipt Date: 20120220
  Transmission Date: 20120608
  Serious: No
  Sender: FDA-Public Use
  Company Number: US-PFIZER INC-2012045567

PATIENT
  Sex: Male
  Weight: 100 kg

DRUGS (3)
  1. LIPITOR [Suspect]
     Indication: BLOOD CHOLESTEROL INCREASED
     Dosage: 10 MG, DAILY
     Dates: start: 20120115
  2. LANTUS [Concomitant]
     Indication: DIABETES MELLITUS
     Dosage: 48 IU, DAILY
  3. METFORMIN [Concomitant]
     Indication: DIABETES MELLITUS
     Dosage: 500 MG, AS NEEDED

REACTIONS (1)
  - DRY MOUTH [None]
